FAERS Safety Report 6233452-5 (Version None)
Quarter: 2009Q2

REPORT INFORMATION
  Report Type: 
  Country: None (occurrence: None)
  Receive Date: 20090616
  Receipt Date: 20090616
  Transmission Date: 20091009
  Serious: Yes (Life-Threatening, Disabling)
  Sender: FDA-Public Use
  Company Number: None

PATIENT
  Age: 70 Year
  Sex: Female

DRUGS (1)
  1. METFORMIN HYDROCHLORIDE [Suspect]
     Indication: DIABETES MELLITUS
     Dosage: 500MG BID PO
     Route: 048
     Dates: start: 20090417, end: 20090605

REACTIONS (7)
  - ABDOMINAL DISCOMFORT [None]
  - COUGH [None]
  - LACTIC ACIDOSIS [None]
  - MALAISE [None]
  - MYALGIA [None]
  - RESPIRATORY DISTRESS [None]
  - SOMNOLENCE [None]
